FAERS Safety Report 24331895 (Version 1)
Quarter: 2024Q3

REPORT INFORMATION
  Report Type: Spontaneous
  Country: CA (occurrence: CA)
  Receive Date: 20240918
  Receipt Date: 20240918
  Transmission Date: 20241017
  Serious: Yes (Death, Other)
  Sender: AUROBINDO
  Company Number: CA-MLMSERVICE-20231005-4591341-1

PATIENT
  Age: 42 Year
  Sex: Male

DRUGS (14)
  1. VENLAFAXINE [Suspect]
     Active Substance: VENLAFAXINE HYDROCHLORIDE
     Indication: Anxiety
     Dosage: 150 MILLIGRAM, ONCE A DAY(TITRATED UP TO 150 MG DAILY OVER A FEW MONTHS)
     Route: 065
  2. BUPROPION [Suspect]
     Active Substance: BUPROPION
     Indication: Dopamine agonist withdrawal syndrome
     Dosage: 300 MILLIGRAM, ONCE A DAY
     Route: 065
  3. CARBIDOPA\LEVODOPA [Suspect]
     Active Substance: CARBIDOPA\LEVODOPA
     Indication: Parkinson^s disease
     Dosage: 1.5 DOSAGE FORM, FOUR TIMES/DAY
     Route: 065
  4. CARBIDOPA\LEVODOPA [Suspect]
     Active Substance: CARBIDOPA\LEVODOPA
     Indication: Dopamine agonist withdrawal syndrome
     Dosage: 1 DOSAGE FORM, 3 TIMES A DAY
     Route: 065
  5. RASAGILINE [Suspect]
     Active Substance: RASAGILINE\RASAGILINE MESYLATE
     Indication: Parkinson^s disease
     Dosage: 1 MILLIGRAM, ONCE A DAY
     Route: 065
  6. RASAGILINE [Suspect]
     Active Substance: RASAGILINE\RASAGILINE MESYLATE
     Indication: Dopamine agonist withdrawal syndrome
  7. ROTIGOTINE [Suspect]
     Active Substance: ROTIGOTINE
     Indication: Parkinson^s disease
     Dosage: 2 MILLIGRAM, ONCE A DAY
     Route: 065
  8. ROTIGOTINE [Suspect]
     Active Substance: ROTIGOTINE
     Dosage: 4 MILLIGRAM, ONCE A DAY
     Route: 065
  9. ROTIGOTINE [Suspect]
     Active Substance: ROTIGOTINE
     Dosage: 6 MILLIGRAM, ONCE A DAY
     Route: 065
  10. VORTIOXETINE [Suspect]
     Active Substance: VORTIOXETINE HYDROBROMIDE
     Indication: Dopamine agonist withdrawal syndrome
     Dosage: UNK, ONCE A DAY
     Route: 065
  11. ROTIGOTINE [Suspect]
     Active Substance: ROTIGOTINE
     Indication: Parkinson^s disease
     Dosage: 8 MILLIGRAM, ONCE A DAY
     Route: 065
  12. ROTIGOTINE [Suspect]
     Active Substance: ROTIGOTINE
     Dosage: 2 MILLIGRAM, ONCE A DAY
     Route: 065
  13. ROTIGOTINE [Suspect]
     Active Substance: ROTIGOTINE
     Dosage: 4 MILLIGRAM, ONCE A DAY
     Route: 065
  14. ROTIGOTINE [Suspect]
     Active Substance: ROTIGOTINE
     Dosage: 6 MILLIGRAM, ONCE A DAY
     Route: 065

REACTIONS (8)
  - Dopamine agonist withdrawal syndrome [Fatal]
  - Erectile dysfunction [Fatal]
  - Impulse-control disorder [Fatal]
  - Completed suicide [Fatal]
  - Suicidal ideation [Fatal]
  - Drug ineffective for unapproved indication [Fatal]
  - Off label use [Fatal]
  - Therapeutic product ineffective [Fatal]
